FAERS Safety Report 10365911 (Version 1)
Quarter: 2014Q3

REPORT INFORMATION
  Report Type: Spontaneous
  Country: US (occurrence: None)
  Receive Date: 20140805
  Receipt Date: 20140805
  Transmission Date: 20150326
  Serious: Yes (Other)
  Sender: FDA-Public Use
  Company Number: None

PATIENT
  Age: 58 Year
  Sex: Female
  Weight: 95.26 kg

DRUGS (2)
  1. BUPROPION HCL XL 300 MG ACTIVIS [Suspect]
     Active Substance: BUPROPION HYDROCHLORIDE
     Indication: FIBROMYALGIA
     Dosage: 1 TABLET  ONCE DAILY  TAKEN BY MOUTH
     Route: 048
     Dates: start: 20130306, end: 20140803
  2. BUPROPION HCL XL 300 MG ACTIVIS [Suspect]
     Active Substance: BUPROPION HYDROCHLORIDE
     Indication: DEPRESSION
     Dosage: 1 TABLET  ONCE DAILY  TAKEN BY MOUTH
     Route: 048
     Dates: start: 20130306, end: 20140803

REACTIONS (10)
  - Rash [None]
  - Memory impairment [None]
  - Temperature intolerance [None]
  - Disturbance in attention [None]
  - Fatigue [None]
  - Lacrimation increased [None]
  - Balance disorder [None]
  - Tremor [None]
  - Visual impairment [None]
  - Drug ineffective [None]

NARRATIVE: CASE EVENT DATE: 20140106
